FAERS Safety Report 8403071-0 (Version None)
Quarter: 2012Q2

REPORT INFORMATION
  Report Type: 
  Country: None (occurrence: None)
  Receive Date: 20120601
  Receipt Date: 20120522
  Transmission Date: 20120825
  Serious: Yes (Other)
  Sender: FDA-Public Use
  Company Number: US-ELI_LILLY_AND_COMPANY-US201201007801

PATIENT
  Sex: Female

DRUGS (3)
  1. FORTEO [Suspect]
     Indication: OSTEOPOROSIS
     Dosage: 20 UG, QD
     Dates: start: 20111101
  2. TEGRETOL [Concomitant]
     Dosage: UNK, BID
  3. PRILOSEC [Concomitant]
     Dosage: UNK, EACH MORNING

REACTIONS (4)
  - FATIGUE [None]
  - STRESS [None]
  - ASTHENIA [None]
  - CONVULSION [None]
